FAERS Safety Report 7121133-5 (Version None)
Quarter: 2010Q4

REPORT INFORMATION
  Report Type: 
  Country: None (occurrence: None)
  Receive Date: 20101122
  Receipt Date: 20101122
  Transmission Date: 20110411
  Serious: Yes (Other)
  Sender: FDA-Public Use
  Company Number: None

PATIENT
  Sex: Female
  Weight: 168 kg

DRUGS (1)
  1. DALLERGY [Suspect]
     Indication: HYPERSENSITIVITY
     Dosage: 1 TABLET 4-6 HRS, NO MORE T OTHER
     Route: 050
     Dates: start: 20100515, end: 20101116

REACTIONS (4)
  - DRY SKIN [None]
  - DYSURIA [None]
  - MICTURITION URGENCY [None]
  - URINE OUTPUT DECREASED [None]
